FAERS Safety Report 6167542-2 (Version None)
Quarter: 2009Q2

REPORT INFORMATION
  Report Type: 
  Country: None (occurrence: None)
  Receive Date: 20090424
  Receipt Date: 20081218
  Transmission Date: 20091009
  Serious: No
  Sender: FDA-Public Use
  Company Number: A0760915A

PATIENT
  Age: 81 Year
  Sex: Male

DRUGS (6)
  1. FLOVENT [Suspect]
     Indication: ASTHMA
     Dosage: 1PUFF TWICE PER DAY
     Route: 055
     Dates: start: 20081105
  2. ALBUTEROL [Concomitant]
  3. VITAMIN-MINERAL COMPOUND TAB [Concomitant]
  4. RANITIDINE [Concomitant]
  5. BLOOD PRESSURE MEDICATION [Concomitant]
  6. CHOLESTEROL REDUCING AGENT [Concomitant]

REACTIONS (1)
  - DYSPNOEA [None]
